FAERS Safety Report 22384327 (Version 2)
Quarter: 2023Q2

REPORT INFORMATION
  Report Type: Report from Study
  Country: US (occurrence: US)
  Receive Date: 20230530
  Receipt Date: 20230602
  Transmission Date: 20230721
  Serious: Yes (Other)
  Sender: FDA-Public Use
  Company Number: US-PFIZER INC-PV202300094057

PATIENT
  Age: 68 Year
  Sex: Male
  Weight: 89.8 kg

DRUGS (7)
  1. METOPROLOL TARTRATE [Suspect]
     Active Substance: METOPROLOL TARTRATE
     Dosage: UNK
     Dates: end: 2023
  2. SILDENAFIL CITRATE [Suspect]
     Active Substance: SILDENAFIL CITRATE
     Dosage: UNK
     Dates: end: 2023
  3. TYVASO [Suspect]
     Active Substance: TREPROSTINIL
     Indication: Pulmonary arterial hypertension
     Dosage: 18 UG, 4X/DAY
     Route: 055
     Dates: start: 20230427
  4. TYVASO [Suspect]
     Active Substance: TREPROSTINIL
     Dosage: 24 UG, 4X/DAY
     Route: 055
  5. TYVASO [Suspect]
     Active Substance: TREPROSTINIL
     Dosage: UNK
     Dates: start: 20230427
  6. LISINOPRIL [Suspect]
     Active Substance: LISINOPRIL
     Dosage: UNK
     Dates: end: 2023
  7. XARELTO [Concomitant]
     Active Substance: RIVAROXABAN
     Dosage: UNK

REACTIONS (7)
  - Fall [Recovered/Resolved]
  - Presyncope [Unknown]
  - Syncope [Unknown]
  - Hypoxia [Unknown]
  - Treatment noncompliance [Unknown]
  - Dizziness [Unknown]
  - Hypotension [Unknown]

NARRATIVE: CASE EVENT DATE: 20230101
